FAERS Safety Report 12114443 (Version 1)
Quarter: 2016Q1

REPORT INFORMATION
  Report Type: Spontaneous
  Country: US (occurrence: None)
  Receive Date: 20160224
  Receipt Date: 20160224
  Transmission Date: 20160526
  Serious: Yes (Hospitalization)
  Sender: FDA-Public Use
  Company Number: None

PATIENT
  Age: 58 Year
  Sex: Male
  Weight: 76.8 kg

DRUGS (22)
  1. HARVONI [Suspect]
     Active Substance: LEDIPASVIR\SOFOSBUVIR
     Indication: HEPATITIS C
     Dosage: 90/400 1X DAILY ORAL
     Route: 048
     Dates: start: 20150811, end: 20160127
  2. COLACE [Concomitant]
     Active Substance: DOCUSATE SODIUM
  3. HYDRALAINE HCI [Concomitant]
  4. PREDNISONE. [Concomitant]
     Active Substance: PREDNISONE
  5. PROGRAF [Concomitant]
     Active Substance: TACROLIMUS\TACROLIMUS ANHYDROUS
  6. NORVASC [Concomitant]
     Active Substance: AMLODIPINE BESYLATE
  7. EROGOCALCIFEROL [Concomitant]
  8. FLOMAX [Concomitant]
     Active Substance: TAMSULOSIN HYDROCHLORIDE
  9. FINASTERIDE. [Concomitant]
     Active Substance: FINASTERIDE
  10. ARANESP IN POLYSORBATE [Concomitant]
  11. MIRALAX [Concomitant]
     Active Substance: POLYETHYLENE GLYCOL 3350
  12. ASPIRIN. [Concomitant]
     Active Substance: ASPIRIN
  13. REMERON [Concomitant]
     Active Substance: MIRTAZAPINE
  14. SENNA [Concomitant]
     Active Substance: SENNA LEAF\SENNOSIDES\SENNOSIDES A AND B
  15. LASIX [Concomitant]
     Active Substance: FUROSEMIDE
  16. FLUDROCORTISONE ACETATE. [Concomitant]
     Active Substance: FLUDROCORTISONE ACETATE
  17. FORTEO [Concomitant]
     Active Substance: TERIPARATIDE
  18. ZYPREXA [Concomitant]
     Active Substance: OLANZAPINE
  19. PRAVASTATIN [Concomitant]
     Active Substance: PRAVASTATIN\PRAVASTATIN SODIUM
  20. MAGNESIUM OXIDE. [Concomitant]
     Active Substance: MAGNESIUM OXIDE
  21. CALCIUM CARBONATE. [Concomitant]
     Active Substance: CALCIUM CARBONATE
  22. TRAMADOL. [Concomitant]
     Active Substance: TRAMADOL

REACTIONS (1)
  - Animal bite [None]

NARRATIVE: CASE EVENT DATE: 20151213
